FAERS Safety Report 13941916 (Version 3)
Quarter: 2018Q3

REPORT INFORMATION
  Report Type: Spontaneous
  Country: GB (occurrence: GB)
  Receive Date: 20170906
  Receipt Date: 20180726
  Transmission Date: 20181010
  Serious: Yes (Hospitalization, Other)
  Sender: FDA-Public Use
  Company Number: GB-SA-2017SA162870

PATIENT
  Age: 23 Year
  Sex: Female
  Weight: 76 kg

DRUGS (9)
  1. ACTRAPID [Suspect]
     Active Substance: INSULIN HUMAN
     Dosage: 22.5 DF, QD
     Dates: start: 20170712, end: 20170713
  2. FOLIC ACID. [Concomitant]
     Active Substance: FOLIC ACID
     Dosage: UNK UNK,UNK
     Route: 065
     Dates: start: 20121214
  3. BETAMETHASONE. [Concomitant]
     Active Substance: BETAMETHASONE
     Dosage: UNK
     Dates: start: 20170712, end: 20170713
  4. NOVORAPID [Suspect]
     Active Substance: INSULIN ASPART
     Indication: TYPE 1 DIABETES MELLITUS
     Dosage: 14 DF,QD
     Route: 058
     Dates: start: 20110419
  5. ACTRAPID [Suspect]
     Active Substance: INSULIN HUMAN
     Indication: TYPE 1 DIABETES MELLITUS
     Dosage: 6.5 DF, QD
     Route: 058
     Dates: start: 20170510, end: 20170511
  6. ACTRAPID [Suspect]
     Active Substance: INSULIN HUMAN
     Dosage: 2 DF, QD
     Route: 042
     Dates: start: 20170714, end: 20170714
  7. ONDANSETRON [Concomitant]
     Active Substance: ONDANSETRON
     Dosage: UNK UNK,UNK
     Route: 065
     Dates: start: 20170510, end: 20170510
  8. LANTUS [Suspect]
     Active Substance: INSULIN GLARGINE
     Indication: TYPE 1 DIABETES MELLITUS
     Dosage: 24 DF,QD
     Route: 058
     Dates: start: 20110419
  9. LANTUS [Suspect]
     Active Substance: INSULIN GLARGINE
     Dosage: 46 DF,QD
     Route: 058

REACTIONS (8)
  - Decreased insulin requirement [Recovered/Resolved]
  - Vomiting [Recovered/Resolved]
  - Viral infection [Recovered/Resolved]
  - Diarrhoea [Recovered/Resolved]
  - Dehydration [Recovered/Resolved]
  - Exposure during pregnancy [Unknown]
  - Foetal hypokinesia [Recovered/Resolved]
  - Hypoglycaemia [Recovered/Resolved]

NARRATIVE: CASE EVENT DATE: 20161103
